FAERS Safety Report 8579131-0 (Version None)
Quarter: 2012Q3

REPORT INFORMATION
  Report Type: 
  Country: None (occurrence: None)
  Receive Date: 20120808
  Receipt Date: 20120726
  Transmission Date: 20120928
  Serious: Yes (Other)
  Sender: FDA-Public Use
  Company Number: JP-ROCHE-1086476

PATIENT
  Age: 61 Year
  Sex: Female

DRUGS (6)
  1. CLONAZEPAM [Suspect]
     Dosage: DOSAGE IS UNCERTAIN.
     Route: 048
  2. CLONAZEPAM [Suspect]
     Dosage: DOSAGE IS UNCERTAIN.
     Route: 048
  3. VALPROATE SODIUM [Suspect]
     Indication: POSTRESUSCITATION ENCEPHALOPATHY
     Dosage: DOSAGE IS UNCERTAIN.
     Route: 048
  4. PHENYTOIN [Suspect]
     Indication: POSTRESUSCITATION ENCEPHALOPATHY
     Dosage: DOSAGE IS UNCERTAIN.
     Route: 065
  5. CLONAZEPAM [Suspect]
     Indication: POSTRESUSCITATION ENCEPHALOPATHY
     Dosage: DOSAGE IS UNCERTAIN.
     Route: 048
  6. PREDNISOLONE [Concomitant]
     Indication: RASH
     Route: 065

REACTIONS (2)
  - DRUG RASH WITH EOSINOPHILIA AND SYSTEMIC SYMPTOMS [None]
  - PYREXIA [None]
